FAERS Safety Report 15098473 (Version 1)
Quarter: 2018Q2

REPORT INFORMATION
  Report Type: Spontaneous
  Country: US (occurrence: US)
  Receive Date: 20180611
  Receipt Date: 20180611
  Transmission Date: 20180711
  Serious: No
  Sender: FDA-Public Use
  Company Number: None

PATIENT
  Age: 65 Year
  Sex: Female

DRUGS (1)
  1. DUPIXENT [Suspect]
     Active Substance: DUPILUMAB
     Indication: PARAESTHESIA
     Route: 058
     Dates: start: 201709

REACTIONS (4)
  - Eye pruritus [None]
  - Drug dose omission [None]
  - Syringe issue [None]
  - Lacrimation increased [None]

NARRATIVE: CASE EVENT DATE: 20180523
